FAERS Safety Report 14789854 (Version 1)
Quarter: 2018Q2

REPORT INFORMATION
  Report Type: Spontaneous
  Country: US (occurrence: US)
  Receive Date: 20180423
  Receipt Date: 20180423
  Transmission Date: 20180711
  Serious: No
  Sender: FDA-Public Use
  Company Number: US-PFIZER INC-2018161288

PATIENT
  Age: 46 Year
  Sex: Female

DRUGS (2)
  1. XELJANZ [Suspect]
     Active Substance: TOFACITINIB CITRATE
     Indication: SYSTEMIC LUPUS ERYTHEMATOSUS
     Dosage: 5 MG, 2X/DAY
     Dates: start: 201801
  2. XELJANZ [Suspect]
     Active Substance: TOFACITINIB CITRATE
     Indication: POLYARTHRITIS
     Dosage: 5 MG, DAILY
     Dates: start: 20180124

REACTIONS (6)
  - Dizziness [Unknown]
  - Drug ineffective for unapproved indication [Unknown]
  - Diarrhoea [Unknown]
  - Drug hypersensitivity [Unknown]
  - Product use issue [Unknown]
  - Drug intolerance [Unknown]
